FAERS Safety Report 5809680-7 (Version None)
Quarter: 2008Q3

REPORT INFORMATION
  Report Type: 
  Country: None (occurrence: None)
  Receive Date: 20080711
  Receipt Date: 20080711
  Transmission Date: 20090109
  Serious: Yes (Hospitalization)
  Sender: FDA-Public Use
  Company Number: None

PATIENT
  Sex: Female
  Weight: 98.6 kg

DRUGS (11)
  1. CARBOPLATIN [Suspect]
     Dosage: 532 MG
     Dates: end: 20080626
  2. TAXOL [Suspect]
     Dosage: 350 MG
     Dates: end: 20080626
  3. LISINOPRIL AND HYDROCHLOROTHIAZIDE [Concomitant]
  4. CIPRO [Concomitant]
  5. COMPAZINE [Concomitant]
  6. IRON [Concomitant]
  7. LIPITOR [Concomitant]
  8. LORATADINE [Concomitant]
  9. METFORMIN [Concomitant]
  10. OXYCODONE HCL [Concomitant]
  11. PRILOSEC [Concomitant]

REACTIONS (8)
  - BLOOD CULTURE POSITIVE [None]
  - DIARRHOEA [None]
  - ESCHERICHIA INFECTION [None]
  - FAECES DISCOLOURED [None]
  - INCISION SITE PAIN [None]
  - NAUSEA [None]
  - TACHYCARDIA [None]
  - URINARY TRACT INFECTION [None]
